FAERS Safety Report 19116825 (Version 2)
Quarter: 2021Q2

REPORT INFORMATION
  Report Type: Spontaneous
  Country: US (occurrence: US)
  Receive Date: 20210410
  Receipt Date: 20210412
  Transmission Date: 20210717
  Serious: No
  Sender: FDA-Public Use
  Company Number: US-SA-2021SA108827

PATIENT
  Age: 46 Year
  Sex: Female

DRUGS (1)
  1. LANTUS [Suspect]
     Active Substance: INSULIN GLARGINE
     Indication: TYPE 2 DIABETES MELLITUS
     Dosage: SLIDING SCALE ; EVERY NIGHT
     Route: 065

REACTIONS (2)
  - Blood glucose increased [Unknown]
  - Device operational issue [Unknown]
